FAERS Safety Report 17469060 (Version 1)
Quarter: 2020Q1

REPORT INFORMATION
  Report Type: Spontaneous
  Country: US (occurrence: US)
  Receive Date: 20200216
  Receipt Date: 20200216
  Transmission Date: 20200409
  Serious: Yes (Hospitalization, Disabling, Other)
  Sender: FDA-Public Use
  Company Number: None

PATIENT
  Age: 57 Year
  Sex: Male
  Weight: 136.53 kg

DRUGS (8)
  1. NORVASC [Concomitant]
     Active Substance: AMLODIPINE BESYLATE
  2. ASPIRIN. [Concomitant]
     Active Substance: ASPIRIN
  3. HEPARIN [Concomitant]
     Active Substance: HEPARIN SODIUM
  4. MULTI VITAMIN [Concomitant]
     Active Substance: VITAMINS
  5. DEPAKOTE [Concomitant]
     Active Substance: DIVALPROEX SODIUM
  6. DEPAKOTE [Suspect]
     Active Substance: DIVALPROEX SODIUM
     Indication: DRUG THERAPY
     Dosage: ?          QUANTITY:80 DF DOSAGE FORM;?
     Route: 048
     Dates: start: 201904
  7. NOVOLOG [Concomitant]
     Active Substance: INSULIN ASPART
  8. LANDRUM (INSULIN) [Concomitant]

REACTIONS (6)
  - Gait inability [None]
  - Mobility decreased [None]
  - Weight increased [None]
  - Dementia [None]
  - Confusional state [None]
  - Treatment failure [None]

NARRATIVE: CASE EVENT DATE: 201906
